FAERS Safety Report 4591495-1 (Version None)
Quarter: 2005Q1

REPORT INFORMATION
  Report Type: 
  Country: None (occurrence: None)
  Receive Date: 20050222
  Receipt Date: 20050208
  Transmission Date: 20050727
  Serious: Yes (Other)
  Sender: FDA-Public Use
  Company Number: 2005027778

PATIENT
  Age: 62 Year
  Sex: Male
  Weight: 95.2554 kg

DRUGS (9)
  1. NEURONTIN [Suspect]
     Indication: ILL-DEFINED DISORDER
  2. CARBAMAZEPINE [Suspect]
     Indication: CONVULSION
     Dates: start: 19830101
  3. DOXYCYCLINE [Suspect]
     Indication: INFECTION
     Dosage: 200 MG (100MG,2 IN 1 D)
     Dates: start: 20050120, end: 20050121
  4. COMBIVENT [Concomitant]
  5. SALBUTAMOL (SALBUTAMOL) [Concomitant]
  6. MULTIVITAMINS (ASCORBIC ACID, ERGOCALCIFEROL, FOLIC ACID, NICOTINAMIDE [Concomitant]
  7. GUAIFENESIN (GUAIFENESIN) [Concomitant]
  8. ALL OTHER THERAPEUTIC PRODUCTS (ALL OTHER THERAPEUTIC PRODUCTS) [Concomitant]
  9. GLIPIZIDE [Concomitant]

REACTIONS (2)
  - DRUG INTERACTION [None]
  - GRAND MAL CONVULSION [None]
